FAERS Safety Report 13574026 (Version 2)
Quarter: 2017Q2

REPORT INFORMATION
  Report Type: Spontaneous
  Country: JP (occurrence: JP)
  Receive Date: 20170523
  Receipt Date: 20170605
  Transmission Date: 20170830
  Serious: Yes (Other)
  Sender: FDA-Public Use
  Company Number: JP-TEVA-2016-000795

PATIENT
  Age: 81 Year
  Sex: Female

DRUGS (1)
  1. BENET [Suspect]
     Active Substance: RISEDRONATE SODIUM
     Indication: OSTEOPOROSIS
     Dosage: UNKNOWN
     Route: 048
     Dates: end: 201303

REACTIONS (9)
  - Pain in extremity [Recovered/Resolved]
  - Pain in extremity [Recovering/Resolving]
  - Fall [Recovered/Resolved]
  - Mobility decreased [Recovering/Resolving]
  - Femur fracture [Unknown]
  - Atypical femur fracture [Unknown]
  - Bone disorder [Recovering/Resolving]
  - Atypical femur fracture [Recovering/Resolving]
  - Bone pain [Unknown]

NARRATIVE: CASE EVENT DATE: 201210
